FAERS Safety Report 4390457-7 (Version None)
Quarter: 2004Q2

REPORT INFORMATION
  Report Type: 
  Country: None (occurrence: None)
  Receive Date: 20040630
  Receipt Date: 20040615
  Transmission Date: 20050107
  Serious: Yes (Hospitalization)
  Sender: FDA-Public Use
  Company Number: 04P-163-0263876-00

PATIENT
  Age: 81 Year
  Sex: Female

DRUGS (16)
  1. SYNTHROID [Suspect]
     Indication: DRUG USE FOR UNKNOWN INDICATION
     Dosage: SEE IMAGE
     Route: 048
     Dates: end: 20011130
  2. SYNTHROID [Suspect]
     Indication: DRUG USE FOR UNKNOWN INDICATION
     Dosage: SEE IMAGE
     Route: 048
     Dates: start: 20020126, end: 20020202
  3. SYNTHROID [Suspect]
     Indication: DRUG USE FOR UNKNOWN INDICATION
     Dosage: SEE IMAGE
     Route: 048
     Dates: start: 20011130, end: 20020226
  4. DYAZIDE [Concomitant]
  5. MAXZIDE [Concomitant]
  6. B COMPLEX WITH ZINC [Concomitant]
  7. B12 THIAMINE [Concomitant]
  8. B6 PYROXIDINE [Concomitant]
  9. CYANOCOBALAMIN [Concomitant]
  10. CLONIDINE HCL [Concomitant]
  11. CITALOPRAM HYDROBROMIDE [Concomitant]
  12. FAMOTIDINE [Concomitant]
  13. OXYCOCET [Concomitant]
  14. TTS PATCH [Concomitant]
  15. ASPIRIN [Concomitant]
  16. TRANDOLAPRIL [Concomitant]

REACTIONS (20)
  - ANXIETY [None]
  - BLISTER [None]
  - BURNING SENSATION [None]
  - CELLULITIS [None]
  - CEREBROVASCULAR ACCIDENT [None]
  - ERYTHEMA [None]
  - HYPERREFLEXIA [None]
  - HYPERTHYROIDISM [None]
  - HYPOREFLEXIA [None]
  - HYPOTONIA [None]
  - LOCALISED INFECTION [None]
  - MUSCLE ATROPHY [None]
  - NAUSEA [None]
  - NERVOUSNESS [None]
  - OEDEMA PERIPHERAL [None]
  - POOR PERIPHERAL CIRCULATION [None]
  - SPEECH DISORDER [None]
  - TREMOR [None]
  - VOMITING [None]
  - WEIGHT DECREASED [None]
